FAERS Safety Report 11157075 (Version 1)
Quarter: 2015Q2

REPORT INFORMATION
  Report Type: Spontaneous
  Country: PL (occurrence: PL)
  Receive Date: 20150602
  Receipt Date: 20150602
  Transmission Date: 20150821
  Serious: Yes (Life-Threatening)
  Sender: FDA-Public Use
  Company Number: PL-TEVA-566798ISR

PATIENT
  Age: 85 Year
  Sex: Female
  Weight: 75 kg

DRUGS (8)
  1. DORETA [Concomitant]
  2. METYPRED [Concomitant]
     Active Substance: METHYLPREDNISOLONE
  3. LAMBRINEX [Concomitant]
  4. ALENDRONAT [Concomitant]
     Active Substance: ALENDRONATE SODIUM
  5. HYDROXYZYNA [Concomitant]
     Active Substance: FLUOXETINE HYDROCHLORIDE
  6. INDIX SR [Suspect]
     Active Substance: INDAPAMIDE
     Indication: HYPERTENSION
     Dosage: 1.5 MILLIGRAM DAILY;
     Route: 048
     Dates: start: 2007, end: 20130724
  7. BISOCARD [Concomitant]
     Active Substance: BISOPROLOL
  8. TORSEMED [Concomitant]

REACTIONS (2)
  - Hyponatraemia [Recovered/Resolved with Sequelae]
  - Seizure [Recovered/Resolved with Sequelae]

NARRATIVE: CASE EVENT DATE: 20130724
